FAERS Safety Report 10087040 (Version 1)
Quarter: 2014Q2

REPORT INFORMATION
  Report Type: Spontaneous
  Country: US (occurrence: US)
  Receive Date: 20140418
  Receipt Date: 20140418
  Transmission Date: 20141212
  Serious: No
  Sender: FDA-Public Use
  Company Number: US-PFIZER INC-2014107270

PATIENT
  Age: 62 Year
  Sex: Female
  Weight: 61.22 kg

DRUGS (3)
  1. LYRICA [Suspect]
     Indication: DIABETIC NEUROPATHY
     Dosage: 75 MG, 2X/DAY
     Dates: start: 2013
  2. LYRICA [Suspect]
     Dosage: 150 MG, 2X/DAY
     Route: 048
     Dates: start: 201403
  3. LYRICA [Suspect]
     Dosage: 150 MG, UNK
     Dates: start: 20140414

REACTIONS (6)
  - Intentional product misuse [Unknown]
  - Fear [Unknown]
  - Hallucination [Unknown]
  - Pain [Unknown]
  - Incorrect dose administered [Unknown]
  - Feeling abnormal [Unknown]
